FAERS Safety Report 7276825-4 (Version None)
Quarter: 2011Q1

REPORT INFORMATION
  Report Type: 
  Country: None (occurrence: None)
  Receive Date: 20110207
  Receipt Date: 20110124
  Transmission Date: 20110831
  Serious: Yes (Death, Hospitalization)
  Sender: FDA-Public Use
  Company Number: US-BIOGENIDEC-2011BI000856

PATIENT
  Age: 55 Year
  Sex: Female

DRUGS (11)
  1. TIZANIDINE [Concomitant]
     Indication: MUSCLE SPASTICITY
  2. MULTI-VITAMIN [Concomitant]
  3. VITAMIN D [Concomitant]
  4. ASPIRIN [Concomitant]
  5. DANTRIUM [Concomitant]
     Indication: MUSCLE SPASTICITY
     Dates: start: 20100429
  6. PROVIGIL [Concomitant]
  7. SANCTURA [Concomitant]
  8. EFFEXOR [Concomitant]
  9. TYSABRI [Suspect]
     Indication: MULTIPLE SCLEROSIS
     Route: 042
     Dates: start: 20100204, end: 20101216
  10. BACLOFEN [Concomitant]
  11. MAGNESIUM [Concomitant]

REACTIONS (5)
  - URINARY TRACT INFECTION [None]
  - PULMONARY EMBOLISM [None]
  - RIGHT ATRIAL DILATATION [None]
  - ATRIAL THROMBOSIS [None]
  - PULMONARY HYPERTENSION [None]
